FAERS Safety Report 7549470-0 (Version None)
Quarter: 2011Q2

REPORT INFORMATION
  Report Type: 
  Country: None (occurrence: None)
  Receive Date: 20110615
  Receipt Date: 20051017
  Transmission Date: 20111010
  Serious: Yes (Hospitalization, Other)
  Sender: FDA-Public Use
  Company Number: PHFR2005GB03437

PATIENT
  Sex: Male

DRUGS (1)
  1. CLOZAPINE [Suspect]
     Indication: SCHIZOPHRENIA
     Route: 048
     Dates: start: 20050915

REACTIONS (5)
  - DILATATION VENTRICULAR [None]
  - DYSPEPSIA [None]
  - CHEST PAIN [None]
  - ALCOHOL USE [None]
  - SINUS TACHYCARDIA [None]
